FAERS Safety Report 10571803 (Version 1)
Quarter: 2014Q4

REPORT INFORMATION
  Report Type: Spontaneous
  Country: GB (occurrence: GB)
  Receive Date: 20141107
  Receipt Date: 20141107
  Transmission Date: 20150529
  Serious: Yes (Hospitalization)
  Sender: FDA-Public Use
  Company Number: GB-ACTAVIS-2014-23643

PATIENT
  Age: 67 Year
  Sex: Female
  Weight: 53 kg

DRUGS (2)
  1. CARBOPLATIN (UNKNOWN) [Suspect]
     Active Substance: CARBOPLATIN
     Indication: SMALL INTESTINE CARCINOMA
     Dosage: 250 MG, UNKNOWN
     Route: 042
     Dates: start: 20141001
  2. GEMCITABINE [Suspect]
     Active Substance: GEMCITABINE\GEMCITABINE HYDROCHLORIDE
     Indication: SMALL INTESTINE CARCINOMA
     Dosage: 1200 MG, UNKNOWN
     Route: 042
     Dates: start: 20141001

REACTIONS (3)
  - Nausea [Unknown]
  - Neutropenia [Unknown]
  - Fatigue [Unknown]
